FAERS Safety Report 5993803-3 (Version None)
Quarter: 2008Q4

REPORT INFORMATION
  Report Type: 
  Country: None (occurrence: None)
  Receive Date: 20081212
  Receipt Date: 20081211
  Transmission Date: 20090506
  Serious: Yes (Hospitalization)
  Sender: FDA-Public Use
  Company Number: A0759939A

PATIENT
  Age: 25 Year
  Sex: Female
  Weight: 94.5 kg

DRUGS (1)
  1. ALLI [Suspect]
     Route: 048
     Dates: start: 20081129, end: 20081203

REACTIONS (4)
  - BACK PAIN [None]
  - DRUG INEFFECTIVE [None]
  - MUSCULOSKELETAL CHEST PAIN [None]
  - PANCREATITIS [None]
